FAERS Safety Report 20934760 (Version 1)
Quarter: 2022Q2

REPORT INFORMATION
  Report Type: Spontaneous
  Country: US (occurrence: US)
  Receive Date: 20220608
  Receipt Date: 20220608
  Transmission Date: 20220721
  Serious: No
  Sender: FDA-Public Use
  Company Number: US-BIOMARINAP-US-2022-143528

PATIENT
  Age: 15 Year
  Sex: Male
  Weight: 63.946 kg

DRUGS (2)
  1. VIMIZIM [Suspect]
     Active Substance: ELOSULFASE ALFA
     Indication: Mucopolysaccharidosis IV
     Dosage: 100 MILLILITER, QW
     Route: 042
     Dates: start: 20190121
  2. TYLENOL [Concomitant]
     Active Substance: ACETAMINOPHEN
     Indication: Pain

REACTIONS (2)
  - Nasopharyngitis [Recovering/Resolving]
  - Nasal congestion [Not Recovered/Not Resolved]

NARRATIVE: CASE EVENT DATE: 20220521
